FAERS Safety Report 5925209-7 (Version None)
Quarter: 2008Q4

REPORT INFORMATION
  Report Type: 
  Country: None (occurrence: None)
  Receive Date: 20081020
  Receipt Date: 20081020
  Transmission Date: 20090506
  Serious: Yes (Hospitalization)
  Sender: FDA-Public Use
  Company Number: None

PATIENT
  Age: 37 Year
  Sex: Female
  Weight: 87.5442 kg

DRUGS (1)
  1. BACTRIM [Suspect]
     Indication: URINARY TRACT INFECTION
     Dosage: 2 A DAY PO
     Route: 048
     Dates: start: 20080914, end: 20081015

REACTIONS (20)
  - APHONIA [None]
  - CHILLS [None]
  - CONTUSION [None]
  - COUGH [None]
  - EYE PAIN [None]
  - FATIGUE [None]
  - HYPERHIDROSIS [None]
  - INSOMNIA [None]
  - LIP SWELLING [None]
  - OCULAR HYPERAEMIA [None]
  - OROPHARYNGEAL PAIN [None]
  - PAIN [None]
  - PERIPHERAL COLDNESS [None]
  - RASH ERYTHEMATOUS [None]
  - RASH PRURITIC [None]
  - SKIN BURNING SENSATION [None]
  - SKIN HAEMORRHAGE [None]
  - SKIN ULCER [None]
  - TREATMENT FAILURE [None]
  - WHEEZING [None]
